FAERS Safety Report 24689030 (Version 1)
Quarter: 2024Q4

REPORT INFORMATION
  Report Type: Spontaneous
  Country: TH (occurrence: TH)
  Receive Date: 20241203
  Receipt Date: 20241203
  Transmission Date: 20250114
  Serious: Yes (Hospitalization)
  Sender: SANDOZ
  Company Number: TH-MLMSERVICE-20241118-PI259997-00218-1

PATIENT
  Age: 36 Year
  Sex: Female

DRUGS (22)
  1. BARICITINIB [Suspect]
     Active Substance: BARICITINIB
     Indication: COVID-19
     Dosage: UNK
     Route: 065
     Dates: start: 2023, end: 2023
  2. DECADRON (DEXAMETHASONE SODIUM PHOSPHATE) [Suspect]
     Active Substance: DEXAMETHASONE SODIUM PHOSPHATE
     Dosage: 10 MG, QD
     Route: 065
     Dates: start: 202307, end: 2023
  3. DECADRON (DEXAMETHASONE SODIUM PHOSPHATE) [Suspect]
     Active Substance: DEXAMETHASONE SODIUM PHOSPHATE
     Indication: Organising pneumonia
     Dosage: 20 MG, QD
     Route: 065
     Dates: start: 2023, end: 2023
  4. DECADRON (DEXAMETHASONE SODIUM PHOSPHATE) [Suspect]
     Active Substance: DEXAMETHASONE SODIUM PHOSPHATE
     Indication: COVID-19 pneumonia
     Dosage: 8 MG, QD
     Route: 065
     Dates: start: 2023, end: 2023
  5. IMURAN [Suspect]
     Active Substance: AZATHIOPRINE
     Indication: Cryoglobulinaemia
     Dosage: 50 MG, QD
     Route: 065
  6. IMURAN [Suspect]
     Active Substance: AZATHIOPRINE
     Indication: Polyarteritis nodosa
  7. METHOTREXATE [Suspect]
     Active Substance: METHOTREXATE
     Indication: Polyarteritis nodosa
     Dosage: 7.5 MG
     Route: 065
  8. METHOTREXATE [Suspect]
     Active Substance: METHOTREXATE
     Indication: Cryoglobulinaemia
  9. METHYLPREDNISOLONE [Suspect]
     Active Substance: METHYLPREDNISOLONE
     Indication: COVID-19
     Dosage: 250 MG TAPERING TO DEXAMETHASONE OVER 30 DAYS
     Route: 042
     Dates: start: 202305
  10. PREDNISOLONE [Suspect]
     Active Substance: PREDNISOLONE
     Indication: COVID-19 pneumonia
     Dosage: 15 MG, QD
     Route: 065
     Dates: start: 2023, end: 20231102
  11. PREDNISOLONE [Suspect]
     Active Substance: PREDNISOLONE
     Indication: Organising pneumonia
  12. RITUXIMAB [Suspect]
     Active Substance: RITUXIMAB
     Dosage: 400 MG TWO ADDITIONAL DOSES
     Route: 065
     Dates: start: 202311
  13. RITUXIMAB [Suspect]
     Active Substance: RITUXIMAB
     Indication: Polyarteritis nodosa
     Dosage: SHE HAD BEEN ON RITUXIMAB FOR THE PAST SIX YEARS
     Route: 065
  14. RITUXIMAB [Suspect]
     Active Substance: RITUXIMAB
     Indication: Cryoglobulinaemia
     Dosage: TWO DOSES OF RITUXIMAB
     Route: 065
     Dates: start: 202308, end: 20231022
  15. TOCILIZUMAB [Suspect]
     Active Substance: TOCILIZUMAB
     Indication: Polyarteritis nodosa
     Dosage: UNK
     Route: 065
     Dates: end: 20231102
  16. TOCILIZUMAB [Suspect]
     Active Substance: TOCILIZUMAB
     Indication: Cryoglobulinaemia
  17. TOFACITINIB [Suspect]
     Active Substance: TOFACITINIB
     Indication: COVID-19 pneumonia
     Dosage: UNK
     Route: 065
     Dates: start: 2023, end: 20231102
  18. TOFACITINIB [Suspect]
     Active Substance: TOFACITINIB
     Indication: Organising pneumonia
  19. OXYGEN [Concomitant]
     Active Substance: OXYGEN
     Indication: Organising pneumonia
     Dosage: CANNULA
     Route: 065
     Dates: start: 2023
  20. OXYGEN [Concomitant]
     Active Substance: OXYGEN
     Indication: COVID-19 pneumonia
  21. REMDESIVIR [Concomitant]
     Active Substance: REMDESIVIR
     Indication: COVID-19 pneumonia
     Dosage: UNK
     Route: 065
     Dates: start: 202305, end: 2023
  22. REMDESIVIR [Concomitant]
     Active Substance: REMDESIVIR
     Indication: Organising pneumonia

REACTIONS (4)
  - Organising pneumonia [Recovering/Resolving]
  - COVID-19 [Recovering/Resolving]
  - COVID-19 pneumonia [Recovering/Resolving]
  - Upper respiratory tract infection [Recovered/Resolved]

NARRATIVE: CASE EVENT DATE: 20230101
